FAERS Safety Report 6591764-X (Version None)
Quarter: 2010Q1

REPORT INFORMATION
  Report Type: 
  Country: None (occurrence: None)
  Receive Date: 20100221
  Receipt Date: 20090605
  Transmission Date: 20100710
  Serious: No
  Sender: FDA-Public Use
  Company Number: US-ALLERGAN-0907900US

PATIENT
  Sex: Female

DRUGS (3)
  1. BOTOX COSMETIC [Suspect]
     Indication: SKIN WRINKLING
     Dosage: UNK, SINGLE
     Route: 030
     Dates: start: 20090515, end: 20090515
  2. CRESTOR [Concomitant]
     Dates: end: 20090501
  3. TOPROL-XL [Concomitant]

REACTIONS (3)
  - FATIGUE [None]
  - INFLUENZA [None]
  - PYREXIA [None]
